FAERS Safety Report 4788334-2 (Version None)
Quarter: 2005Q4

REPORT INFORMATION
  Report Type: 
  Country: None (occurrence: None)
  Receive Date: 20051003
  Receipt Date: 20050916
  Transmission Date: 20060501
  Serious: Yes (Hospitalization)
  Sender: FDA-Public Use
  Company Number: 2005-US-00202

PATIENT
  Age: 39 Year
  Sex: Female

DRUGS (8)
  1. FLUOXETINE HCL [Suspect]
  2. LINEZOLID [Suspect]
  3. DISULFIRAM [Concomitant]
  4. BUSPIRONE HCL [Concomitant]
  5. CYCLOBENZAPRINE HCL [Concomitant]
  6. FOLATE SODIUM [Concomitant]
  7. LORAZEPAM [Concomitant]
  8. HALOPERIDOL [Concomitant]

REACTIONS (10)
  - ALCOHOL WITHDRAWAL SYNDROME [None]
  - ANTICHOLINERGIC SYNDROME [None]
  - DRUG INTERACTION [None]
  - LOSS OF CONSCIOUSNESS [None]
  - OVERDOSE [None]
  - PNEUMONIA ASPIRATION [None]
  - RESPIRATORY DEPRESSION [None]
  - SEROTONIN SYNDROME [None]
  - SPUTUM CULTURE POSITIVE [None]
  - STAPHYLOCOCCAL INFECTION [None]
